FAERS Safety Report 10067935 (Version 2)
Quarter: 2014Q3

REPORT INFORMATION
  Report Type: Spontaneous
  Country: FR (occurrence: FR)
  Receive Date: 20140409
  Receipt Date: 20140904
  Transmission Date: 20150326
  Serious: Yes (Hospitalization)
  Sender: FDA-Public Use
  Company Number: FR-ASTRAZENECA-2014SE23421

PATIENT
  Age: 745 Month
  Sex: Male

DRUGS (9)
  1. MERONEM [Suspect]
     Active Substance: MEROPENEM
     Route: 042
     Dates: start: 20140127
  2. ARGANOVA [Suspect]
     Active Substance: ARGATROBAN
     Dosage: 100 MG/ML, 1.4
     Route: 042
     Dates: start: 201312
  3. ORBENINE [Suspect]
     Active Substance: CLOXACILLIN SODIUM
     Dates: start: 20140201, end: 201403
  4. EUPANTOL [Concomitant]
     Active Substance: PANTOPRAZOLE SODIUM
     Route: 048
  5. BISOPROLOL [Concomitant]
     Active Substance: BISOPROLOL
     Route: 048
  6. KARDEGIC [Concomitant]
     Active Substance: ASPIRIN LYSINE
     Route: 048
     Dates: end: 20140305
  7. CIFLOX [Suspect]
     Active Substance: CIPROFLOXACIN
     Route: 048
     Dates: start: 20140201, end: 201403
  8. CORDARONE [Concomitant]
     Active Substance: AMIODARONE HYDROCHLORIDE
     Route: 048
  9. XATRAL [Concomitant]
     Active Substance: ALFUZOSIN
     Dosage: 10 MG SR QD
     Route: 048

REACTIONS (2)
  - Renal impairment [Not Recovered/Not Resolved]
  - Renal failure acute [Not Recovered/Not Resolved]

NARRATIVE: CASE EVENT DATE: 201402
